FAERS Safety Report 24890215 (Version 4)
Quarter: 2025Q3

REPORT INFORMATION
  Report Type: Spontaneous
  Country: EU (occurrence: EU)
  Receive Date: 20250127
  Receipt Date: 20250923
  Transmission Date: 20251021
  Serious: Yes (Other)
  Sender: MYLAN
  Company Number: EU-ASTELLAS-2025-AER-000654

PATIENT
  Age: 78 Year
  Sex: Male

DRUGS (44)
  1. MIRTAZAPINE [Suspect]
     Active Substance: MIRTAZAPINE
     Indication: Product used for unknown indication
  2. MIRTAZAPINE [Suspect]
     Active Substance: MIRTAZAPINE
     Route: 065
  3. MIRTAZAPINE [Suspect]
     Active Substance: MIRTAZAPINE
     Route: 065
  4. MIRTAZAPINE [Suspect]
     Active Substance: MIRTAZAPINE
  5. ENZALUTAMIDE [Interacting]
     Active Substance: ENZALUTAMIDE
     Indication: Prostate cancer metastatic
  6. ENZALUTAMIDE [Interacting]
     Active Substance: ENZALUTAMIDE
     Indication: Metastases to bone
  7. ENZALUTAMIDE [Interacting]
     Active Substance: ENZALUTAMIDE
     Route: 065
  8. ENZALUTAMIDE [Interacting]
     Active Substance: ENZALUTAMIDE
     Route: 065
  9. ENZALUTAMIDE [Interacting]
     Active Substance: ENZALUTAMIDE
  10. ENZALUTAMIDE [Interacting]
     Active Substance: ENZALUTAMIDE
  11. ENZALUTAMIDE [Interacting]
     Active Substance: ENZALUTAMIDE
     Route: 065
  12. ENZALUTAMIDE [Interacting]
     Active Substance: ENZALUTAMIDE
     Route: 065
  13. TAMSULOSIN [Suspect]
     Active Substance: TAMSULOSIN
     Indication: Product used for unknown indication
  14. TAMSULOSIN [Suspect]
     Active Substance: TAMSULOSIN
     Route: 065
  15. TAMSULOSIN [Suspect]
     Active Substance: TAMSULOSIN
     Route: 065
  16. TAMSULOSIN [Suspect]
     Active Substance: TAMSULOSIN
  17. PANTOPRAZOLE [Suspect]
     Active Substance: PANTOPRAZOLE
     Indication: Product used for unknown indication
  18. PANTOPRAZOLE [Suspect]
     Active Substance: PANTOPRAZOLE
     Route: 065
  19. PANTOPRAZOLE [Suspect]
     Active Substance: PANTOPRAZOLE
     Route: 065
  20. PANTOPRAZOLE [Suspect]
     Active Substance: PANTOPRAZOLE
  21. PREDNISOLONE [Interacting]
     Active Substance: PREDNISOLONE
     Indication: Product used for unknown indication
  22. PREDNISOLONE [Interacting]
     Active Substance: PREDNISOLONE
     Route: 065
  23. PREDNISOLONE [Interacting]
     Active Substance: PREDNISOLONE
     Route: 065
  24. PREDNISOLONE [Interacting]
     Active Substance: PREDNISOLONE
  25. METAMIZOLE [Interacting]
     Active Substance: METAMIZOLE
     Indication: Product used for unknown indication
  26. METAMIZOLE [Interacting]
     Active Substance: METAMIZOLE
     Route: 065
  27. METAMIZOLE [Interacting]
     Active Substance: METAMIZOLE
     Route: 065
  28. METAMIZOLE [Interacting]
     Active Substance: METAMIZOLE
  29. LEUPROLIDE ACETATE [Suspect]
     Active Substance: LEUPROLIDE ACETATE
     Indication: Prostate cancer metastatic
  30. LEUPROLIDE ACETATE [Suspect]
     Active Substance: LEUPROLIDE ACETATE
     Indication: Metastases to bone
     Route: 058
  31. LEUPROLIDE ACETATE [Suspect]
     Active Substance: LEUPROLIDE ACETATE
     Indication: Product used for unknown indication
     Route: 058
  32. LEUPROLIDE ACETATE [Suspect]
     Active Substance: LEUPROLIDE ACETATE
  33. BICALUTAMIDE [Suspect]
     Active Substance: BICALUTAMIDE
     Indication: Product used for unknown indication
  34. BICALUTAMIDE [Suspect]
     Active Substance: BICALUTAMIDE
     Route: 065
  35. BICALUTAMIDE [Suspect]
     Active Substance: BICALUTAMIDE
     Route: 065
  36. BICALUTAMIDE [Suspect]
     Active Substance: BICALUTAMIDE
  37. DENOSUMAB [Suspect]
     Active Substance: DENOSUMAB
     Indication: Prostate cancer metastatic
  38. DENOSUMAB [Suspect]
     Active Substance: DENOSUMAB
     Indication: Metastases to bone
     Route: 065
  39. DENOSUMAB [Suspect]
     Active Substance: DENOSUMAB
     Route: 065
  40. DENOSUMAB [Suspect]
     Active Substance: DENOSUMAB
  41. ESOMEPRAZOLE [Suspect]
     Active Substance: ESOMEPRAZOLE
     Indication: Product used for unknown indication
  42. ESOMEPRAZOLE [Suspect]
     Active Substance: ESOMEPRAZOLE
     Route: 065
  43. ESOMEPRAZOLE [Suspect]
     Active Substance: ESOMEPRAZOLE
     Route: 065
  44. ESOMEPRAZOLE [Suspect]
     Active Substance: ESOMEPRAZOLE

REACTIONS (8)
  - Shock haemorrhagic [Recovered/Resolved]
  - Haematemesis [Recovered/Resolved]
  - Oesophageal ulcer haemorrhage [Recovered/Resolved]
  - Hypocalcaemia [Recovered/Resolved]
  - Hepatotoxicity [Recovered/Resolved]
  - Drug-induced liver injury [Recovered/Resolved]
  - Acute hepatic failure [Recovered/Resolved]
  - Drug interaction [Unknown]
